FAERS Safety Report 14279831 (Version 1)
Quarter: 2017Q4

REPORT INFORMATION
  Report Type: Spontaneous
  Country: IS (occurrence: IS)
  Receive Date: 20171212
  Receipt Date: 20171212
  Transmission Date: 20180321
  Serious: Yes (Death, Life-Threatening, Hospitalization)
  Sender: FDA-Public Use
  Company Number: IS-SA-2017SA245459

PATIENT
  Age: 84 Year
  Sex: Female
  Weight: 93 kg

DRUGS (1)
  1. KLEXANE [Suspect]
     Active Substance: ENOXAPARIN
     Indication: HAEMODILUTION
     Route: 065
     Dates: start: 2014, end: 20171128

REACTIONS (3)
  - Syncope [Fatal]
  - Abdominal pain [Fatal]
  - Abdominal wall haematoma [Fatal]

NARRATIVE: CASE EVENT DATE: 20171128
